FAERS Safety Report 5042868-4 (Version None)
Quarter: 2006Q3

REPORT INFORMATION
  Report Type: 
  Country: None (occurrence: None)
  Receive Date: 20060705
  Receipt Date: 20060628
  Transmission Date: 20061208
  Serious: Yes (Other)
  Sender: FDA-Public Use
  Company Number: GB-GLAXOSMITHKLINE-B0429126A

PATIENT
  Age: 49 Year
  Sex: Female

DRUGS (2)
  1. SEROXAT [Suspect]
     Dosage: 20MG AT NIGHT
     Route: 048
     Dates: start: 20060627
  2. TEMAZEPAM [Suspect]
     Dosage: 10MG AT NIGHT
     Dates: start: 20060620

REACTIONS (3)
  - CONSCIOUSNESS FLUCTUATING [None]
  - DELIRIUM [None]
  - MYDRIASIS [None]
